FAERS Safety Report 19376227 (Version 2)
Quarter: 2021Q3

REPORT INFORMATION
  Report Type: Spontaneous
  Country: US (occurrence: US)
  Receive Date: 20210604
  Receipt Date: 20210701
  Transmission Date: 20211014
  Serious: No
  Sender: FDA-Public Use
  Company Number: NVSC2021US120045

PATIENT
  Sex: Female

DRUGS (1)
  1. COMBIPATCH [Suspect]
     Active Substance: ESTRADIOL\NORETHINDRONE ACETATE
     Indication: PRODUCT USED FOR UNKNOWN INDICATION
     Dosage: 1 DF, QD
     Route: 062
     Dates: start: 2018

REACTIONS (4)
  - Application site rash [Not Recovered/Not Resolved]
  - Product intolerance [Not Recovered/Not Resolved]
  - Application site erythema [Not Recovered/Not Resolved]
  - Product quality issue [Not Recovered/Not Resolved]
